FAERS Safety Report 24956143 (Version 2)
Quarter: 2025Q1

REPORT INFORMATION
  Report Type: Spontaneous
  Country: JP (occurrence: JP)
  Receive Date: 20250211
  Receipt Date: 20250320
  Transmission Date: 20250409
  Serious: No
  Sender: PFIZER
  Company Number: JP-PFIZER INC-PV202500014420

PATIENT
  Age: 12 Year
  Sex: Female

DRUGS (1)
  1. NGENLA [Suspect]
     Active Substance: SOMATROGON-GHLA
     Indication: Growth hormone deficiency
     Route: 058

REACTIONS (1)
  - Injection site pain [Recovered/Resolved]

NARRATIVE: CASE EVENT DATE: 20250130
